FAERS Safety Report 8222266-2 (Version None)
Quarter: 2012Q1

REPORT INFORMATION
  Report Type: 
  Country: None (occurrence: None)
  Receive Date: 20120320
  Receipt Date: 20120315
  Transmission Date: 20120608
  Serious: Yes (Hospitalization)
  Sender: FDA-Public Use
  Company Number: US-GLAXOSMITHKLINE-A0967720A

PATIENT
  Sex: Female
  Weight: 86.4 kg

DRUGS (1)
  1. TYKERB [Suspect]
     Indication: BONE NEOPLASM MALIGNANT
     Dosage: 250MG UNKNOWN
     Route: 048

REACTIONS (4)
  - ELECTROLYTE IMBALANCE [None]
  - NAUSEA [None]
  - APPARENT DEATH [None]
  - DIARRHOEA [None]
